FAERS Safety Report 4314512-2 (Version None)
Quarter: 2004Q1

REPORT INFORMATION
  Report Type: 
  Country: None (occurrence: None)
  Receive Date: 20040308
  Receipt Date: 20040301
  Transmission Date: 20041129
  Serious: Yes (Other)
  Sender: FDA-Public Use
  Company Number: 2004-01-1969

PATIENT
  Sex: Female

DRUGS (2)
  1. NASONEX [Suspect]
     Dosage: NASAL SPRAY
  2. ATROVENT [Suspect]
     Indication: CHRONIC OBSTRUCTIVE AIRWAYS DISEASE

REACTIONS (2)
  - CORNEAL EROSION [None]
  - REFUSAL OF TREATMENT BY PATIENT [None]
